FAERS Safety Report 12740135 (Version 1)
Quarter: 2016Q3

REPORT INFORMATION
  Report Type: Spontaneous
  Country: US (occurrence: US)
  Receive Date: 20160913
  Receipt Date: 20160913
  Transmission Date: 20161109
  Serious: Yes (Other)
  Sender: FDA-Public Use
  Company Number: US-GLAXOSMITHKLINE-US2016132179

PATIENT
  Age: 65 Year
  Sex: Female

DRUGS (2)
  1. VOLTAREN [Suspect]
     Active Substance: DICLOFENAC SODIUM
     Indication: LIGAMENT RUPTURE
     Dosage: UNK
     Dates: start: 2011
  2. VOLTAREN [Suspect]
     Active Substance: DICLOFENAC SODIUM
     Indication: ARTHRITIS

REACTIONS (4)
  - Intentional product use issue [Unknown]
  - Neoplasm malignant [Not Recovered/Not Resolved]
  - Spinal operation [Unknown]
  - Drug administered at inappropriate site [Unknown]
